FAERS Safety Report 4605084-3 (Version None)
Quarter: 2005Q1

REPORT INFORMATION
  Report Type: 
  Country: None (occurrence: None)
  Receive Date: 20050217
  Receipt Date: 20041202
  Transmission Date: 20050727
  Serious: No
  Sender: FDA-Public Use
  Company Number: S04-USA-07650-01

PATIENT
  Age: 78 Year
  Sex: Female

DRUGS (7)
  1. NAMENDA [Suspect]
     Indication: PARKINSON'S DISEASE
     Dosage: 5 MG BID; PO
     Route: 048
     Dates: start: 20040101
  2. NAMENDA [Suspect]
     Indication: PARKINSON'S DISEASE
     Dosage: 5 MG QD; PO
     Route: 048
     Dates: start: 20040901, end: 20040101
  3. COMTAN [Suspect]
     Indication: PARKINSON'S DISEASE
     Dates: end: 20041126
  4. ARICEPT [Concomitant]
  5. SINEMET [Concomitant]
  6. OXYBUTYNIN [Concomitant]
  7. TRAZODONE HCL [Concomitant]

REACTIONS (2)
  - CONFUSIONAL STATE [None]
  - COORDINATION ABNORMAL [None]
